FAERS Safety Report 9312199 (Version 3)
Quarter: 2013Q2

REPORT INFORMATION
  Report Type: Spontaneous
  Country: US (occurrence: US)
  Receive Date: 20130528
  Receipt Date: 20130614
  Transmission Date: 20140414
  Serious: Yes (Death)
  Sender: FDA-Public Use
  Company Number: US-CELGENEUS-163-POMAL-13053316

PATIENT
  Age: 81 Year
  Sex: Male

DRUGS (12)
  1. POMALYST [Suspect]
     Indication: PLASMA CELL MYELOMA
     Dosage: 4 MILLIGRAM
     Route: 048
     Dates: start: 20130515, end: 20130519
  2. ASPIRINE [Concomitant]
     Indication: PRODUCT USED FOR UNKNOWN INDICATION
     Route: 065
  3. CALCIUM [Concomitant]
     Indication: PRODUCT USED FOR UNKNOWN INDICATION
     Route: 065
  4. FUROSEMIDE [Concomitant]
     Indication: HYPERTENSION
     Dosage: 40 MILLIGRAM
     Route: 048
  5. NEURONTIN [Concomitant]
     Indication: NEURALGIA
     Dosage: 900 MILLIGRAM
     Route: 048
  6. MAGNESIUM [Concomitant]
     Indication: PRODUCT USED FOR UNKNOWN INDICATION
     Route: 065
  7. TOPROL [Concomitant]
     Indication: HYPERTENSION
     Dosage: 50 MILLIGRAM
     Route: 048
  8. SIMVASTATIN [Concomitant]
     Indication: HYPERLIPIDAEMIA
     Dosage: 20 MILLIGRAM
     Route: 048
  9. NITROGLYCERIN [Concomitant]
     Indication: CHEST PAIN
     Route: 065
  10. ACYCLOVIR [Concomitant]
     Indication: PROPHYLAXIS
     Dosage: 800 MILLIGRAM
     Route: 065
  11. LISINOPRIL [Concomitant]
     Indication: HYPERTENSION
     Route: 048
  12. TRAMADOL [Concomitant]
     Indication: PAIN
     Dosage: 150 MILLIGRAM
     Route: 048

REACTIONS (1)
  - Cardiac death [Fatal]
